FAERS Safety Report 4438030-6 (Version None)
Quarter: 2004Q3

REPORT INFORMATION
  Report Type: 
  Country: None (occurrence: None)
  Receive Date: 20040831
  Receipt Date: 20040507
  Transmission Date: 20050211
  Serious: No
  Sender: FDA-Public Use
  Company Number: US-GLAXOSMITHKLINE-A0510021A

PATIENT
  Age: 53 Year
  Sex: Female

DRUGS (3)
  1. WELLBUTRIN XL [Suspect]
     Indication: ILL-DEFINED DISORDER
     Dosage: 150MG PER DAY
     Route: 048
     Dates: start: 20040416
  2. CLARINEX [Concomitant]
  3. FOSAMAX [Concomitant]

REACTIONS (3)
  - MIGRAINE [None]
  - SENSATION OF PRESSURE [None]
  - VISION BLURRED [None]
